FAERS Safety Report 5840282-2 (Version None)
Quarter: 2008Q3

REPORT INFORMATION
  Report Type: 
  Country: None (occurrence: None)
  Receive Date: 20080807
  Receipt Date: 20080807
  Transmission Date: 20090109
  Serious: Yes (Other)
  Sender: FDA-Public Use
  Company Number: None

PATIENT
  Sex: Female
  Weight: 49.8957 kg

DRUGS (2)
  1. LIPITOR [Suspect]
     Indication: BLOOD CHOLESTEROL INCREASED
     Dosage: 1 TABLET PER DAY DAILY BY MOUTH
     Route: 048
     Dates: start: 20050201, end: 20050801
  2. LYRICA [Suspect]
     Indication: NEUROPATHY PERIPHERAL
     Dosage: 1 TABLET PER DAY DAILY BY MOUTH
     Route: 048
     Dates: start: 20060101, end: 20060901

REACTIONS (5)
  - BURNING SENSATION [None]
  - NEUROPATHY PERIPHERAL [None]
  - NO THERAPEUTIC RESPONSE [None]
  - PARAESTHESIA [None]
  - PRURITUS [None]
